FAERS Safety Report 20674508 (Version 1)
Quarter: 2022Q2

REPORT INFORMATION
  Report Type: Spontaneous
  Country: US (occurrence: US)
  Receive Date: 20220405
  Receipt Date: 20220405
  Transmission Date: 20220721
  Serious: No
  Sender: FDA-Public Use
  Company Number: US-PFIZER INC-202101090923

PATIENT
  Age: 62 Year
  Sex: Female
  Weight: 88.93 kg

DRUGS (9)
  1. IBRANCE [Suspect]
     Active Substance: PALBOCICLIB
     Indication: Breast cancer female
     Dosage: 125 MG, CYCLIC (1 DAULY FOR 21 DAYS)
     Route: 048
     Dates: start: 20210728
  2. FLUTICASONE PROPIONATE [Concomitant]
     Active Substance: FLUTICASONE PROPIONATE
     Dosage: UNK [50 MCG SPRAY]
  3. IBUPROFEN SODIUM [Concomitant]
     Active Substance: IBUPROFEN SODIUM
     Dosage: 200 MG
  4. VITAMIN C [Concomitant]
     Active Substance: ASCORBIC ACID
     Dosage: 1000 UG
  5. METHYLCOBALAMIN [Concomitant]
     Active Substance: METHYLCOBALAMIN
     Dosage: 1000 UG
  6. XGEVA [Concomitant]
     Active Substance: DENOSUMAB
     Dosage: UNK [120 MG/1.7 VIAL]
  7. CALCIUM [Concomitant]
     Active Substance: CALCIUM
     Dosage: UNK [CALCIUM 500 (1250) TABLET]
  8. METOPROLOL SUCCINATE [Concomitant]
     Active Substance: METOPROLOL SUCCINATE
     Dosage: UNK
  9. LETROZOLE [Concomitant]
     Active Substance: LETROZOLE
     Dosage: 2.5 MG

REACTIONS (2)
  - Fatigue [Unknown]
  - Alopecia [Unknown]

NARRATIVE: CASE EVENT DATE: 20210101
